FAERS Safety Report 12382519 (Version 1)
Quarter: 2016Q2

REPORT INFORMATION
  Report Type: Report from Study
  Country: US (occurrence: US)
  Receive Date: 20160518
  Receipt Date: 20160518
  Transmission Date: 20160815
  Serious: No
  Sender: FDA-Public Use
  Company Number: US-MALLINCKRODT-T201502593

PATIENT
  Age: 63 Year
  Sex: Male

DRUGS (2)
  1. REPOSITORY CORTICOTROPIN INJECTION [Suspect]
     Active Substance: CORTICOTROPIN
     Indication: NEPHROPATHY
     Dosage: 80 UNITS EVERY 4 DAYS
     Route: 058
  2. REPOSITORY CORTICOTROPIN INJECTION [Suspect]
     Active Substance: CORTICOTROPIN
     Indication: NEPHROTIC SYNDROME
     Dosage: 80 UNITS TWICE PER WEEK
     Route: 058
     Dates: start: 20150218

REACTIONS (6)
  - Mood altered [Unknown]
  - Nasopharyngitis [Unknown]
  - Emotional disorder [Unknown]
  - Viral infection [Recovering/Resolving]
  - Alopecia [Unknown]
  - General physical health deterioration [Unknown]

NARRATIVE: CASE EVENT DATE: 20160329
